FAERS Safety Report 19165459 (Version 1)
Quarter: 2021Q2

REPORT INFORMATION
  Report Type: Spontaneous
  Country: US (occurrence: US)
  Receive Date: 20210421
  Receipt Date: 20210421
  Transmission Date: 20210717
  Serious: No
  Sender: FDA-Public Use
  Company Number: US-BAUSCH-BL-2021-011119

PATIENT
  Age: 92 Year
  Sex: Female

DRUGS (2)
  1. ALREX [Suspect]
     Active Substance: LOTEPREDNOL ETABONATE
     Dosage: USED IN THE LAST FEW WEEKS; MOST CURRENT BOTTLE
     Route: 047
     Dates: start: 202103, end: 20210326
  2. ALREX [Suspect]
     Active Substance: LOTEPREDNOL ETABONATE
     Indication: PRODUCT USED FOR UNKNOWN INDICATION
     Dosage: HAD BEEN ON FOR 10YEARS; HAD NO ISSUES
     Route: 047
     Dates: start: 2011

REACTIONS (2)
  - Ocular hyperaemia [Recovered/Resolved]
  - Eyelid margin crusting [Recovered/Resolved]

NARRATIVE: CASE EVENT DATE: 202103
